FAERS Safety Report 10187300 (Version 2)
Quarter: 2014Q2

REPORT INFORMATION
  Report Type: Spontaneous
  Country: BR (occurrence: BR)
  Receive Date: 20140522
  Receipt Date: 20140603
  Transmission Date: 20141212
  Serious: Yes (Other)
  Sender: FDA-Public Use
  Company Number: BR-SA-2014SA061222

PATIENT
  Age: 25 Year
  Sex: Male
  Weight: 85 kg

DRUGS (4)
  1. LANTUS [Suspect]
     Indication: TYPE 1 DIABETES MELLITUS
     Route: 058
     Dates: start: 2008
  2. OPTIPEN [Concomitant]
     Indication: DEVICE THERAPY
     Dates: start: 2009
  3. ENALAPRIL MALEATE [Concomitant]
     Indication: RENAL DISORDER
     Route: 048
     Dates: start: 2010
  4. NOVORAPID [Concomitant]
     Indication: TYPE 1 DIABETES MELLITUS
     Dosage: ACCORDING TO CARBOHYDRATE COUNT (^FROM 15 TO 20 IU^S DAILY IN TOTAL^)
     Route: 058
     Dates: start: 2009

REACTIONS (3)
  - Blindness [Not Recovered/Not Resolved]
  - Vision blurred [Not Recovered/Not Resolved]
  - Eye haemorrhage [Not Recovered/Not Resolved]
